FAERS Safety Report 7703513-X (Version None)
Quarter: 2011Q3

REPORT INFORMATION
  Report Type: 
  Country: None (occurrence: None)
  Receive Date: 20110823
  Receipt Date: 20110819
  Transmission Date: 20111222
  Serious: Yes (Life-Threatening, Hospitalization)
  Sender: FDA-Public Use
  Company Number: US-B.I. PHARMACEUTICALS,INC./RIDGEFIELD-2011-BP-16444BP

PATIENT
  Age: 73 Year
  Sex: Male
  Weight: 107 kg

DRUGS (5)
  1. PRADAXA [Suspect]
     Indication: ATRIAL FIBRILLATION
     Dosage: 300 MG
     Route: 048
     Dates: end: 20110627
  2. PRADAXA [Suspect]
     Indication: CARDIOVERSION
  3. PRADAXA [Suspect]
     Indication: CARDIAC ABLATION
  4. MULTAQ [Concomitant]
     Dosage: 400 MG
     Dates: end: 20110710
  5. DIGOXIN [Concomitant]
     Dosage: 0.25 MG

REACTIONS (7)
  - RIB FRACTURE [None]
  - FALL [None]
  - SCAPULA FRACTURE [None]
  - SPINAL COMPRESSION FRACTURE [None]
  - HAEMORRHAGE [None]
  - HAEMOTHORAX [None]
  - SHOCK HAEMORRHAGIC [None]
